FAERS Safety Report 8095366-8 (Version None)
Quarter: 2012Q1

REPORT INFORMATION
  Report Type: 
  Country: None (occurrence: None)
  Receive Date: 20120125
  Receipt Date: 20120119
  Transmission Date: 20120608
  Serious: Yes (Hospitalization, Disabling, Other)
  Sender: FDA-Public Use
  Company Number: 2010SP042477

PATIENT
  Age: 31 Year
  Sex: Female
  Weight: 103.4201 kg

DRUGS (9)
  1. NUVARING [Suspect]
     Indication: MENSTRUAL DISORDER
     Dates: end: 20060301
  2. NUVARING [Suspect]
     Indication: MENSTRUAL DISORDER
     Dates: start: 20071001
  3. NUVARING [Suspect]
     Indication: MENSTRUAL DISORDER
     Dates: start: 20070601, end: 20070801
  4. NUVARING [Suspect]
     Indication: MENSTRUAL DISORDER
     Dates: start: 20030101, end: 20080707
  5. HERBALIFE [Concomitant]
  6. HYDROCHLOROTHIAZIDE [Concomitant]
  7. POTASSIUM CHLORIDE [Concomitant]
  8. METFORMIN HCL [Concomitant]
  9. ASPIRIN [Concomitant]

REACTIONS (39)
  - IMPAIRED WORK ABILITY [None]
  - HEADACHE [None]
  - DIABETES MELLITUS INADEQUATE CONTROL [None]
  - BLOOD GLUCOSE INCREASED [None]
  - GOUT [None]
  - HYPERTENSION [None]
  - PULMONARY HYPERTENSION [None]
  - OVARIAN CYST [None]
  - PERITONEAL HAEMORRHAGE [None]
  - HAEMORRHAGIC OVARIAN CYST [None]
  - CARDIAC FAILURE CONGESTIVE [None]
  - BODY TEMPERATURE INCREASED [None]
  - WEIGHT DECREASED [None]
  - ANXIETY [None]
  - DERMATITIS [None]
  - AMENORRHOEA [None]
  - OBESITY [None]
  - CARDIOMEGALY [None]
  - SYNCOPE [None]
  - PLEURAL EFFUSION [None]
  - PAIN IN JAW [None]
  - DEVICE BREAKAGE [None]
  - DEEP VEIN THROMBOSIS [None]
  - SCAR [None]
  - OSTEOARTHRITIS [None]
  - HYPOKALAEMIA [None]
  - PULMONARY EMBOLISM [None]
  - ACNE [None]
  - INTERNATIONAL NORMALISED RATIO DECREASED [None]
  - RENAL FAILURE [None]
  - PROCEDURAL COMPLICATION [None]
  - RASH PRURITIC [None]
  - SLEEP APNOEA SYNDROME [None]
  - URINARY RETENTION [None]
  - JAUNDICE [None]
  - HIRSUTISM [None]
  - TREATMENT NONCOMPLIANCE [None]
  - MENORRHAGIA [None]
  - ARTHRALGIA [None]
